FAERS Safety Report 5247496-3 (Version None)
Quarter: 2007Q1

REPORT INFORMATION
  Report Type: 
  Country: None (occurrence: None)
  Receive Date: 20070223
  Receipt Date: 20070223
  Transmission Date: 20070707
  Serious: Yes (Other)
  Sender: FDA-Public Use
  Company Number: None

PATIENT
  Age: 22 Year
  Sex: Male
  Weight: 72.5755 kg

DRUGS (2)
  1. LEVAQUIN [Suspect]
     Indication: PROSTATITIS
     Dosage: 500 MG ONCE DAILY ORALLY
     Route: 048
     Dates: start: 20050823, end: 20050913
  2. LEVAQUIN [Suspect]
     Indication: PROSTATITIS
     Dosage: 500 MG ONCE DAILY ORALLY
     Route: 048
     Dates: start: 20051018, end: 20051031

REACTIONS (17)
  - ARTHRALGIA [None]
  - ARTHROPATHY [None]
  - BACK PAIN [None]
  - DECREASED ACTIVITY [None]
  - DIZZINESS [None]
  - FEELING HOT AND COLD [None]
  - JAW DISORDER [None]
  - JOINT CREPITATION [None]
  - JOINT INJURY [None]
  - MUSCLE TWITCHING [None]
  - MUSCULAR WEAKNESS [None]
  - MUSCULOSKELETAL PAIN [None]
  - NECK PAIN [None]
  - PAIN [None]
  - PARAESTHESIA [None]
  - SCIATICA [None]
  - URINE ANALYSIS ABNORMAL [None]
